FAERS Safety Report 15191611 (Version 6)
Quarter: 2019Q4

REPORT INFORMATION
  Report Type: Report from Study
  Country: DE (occurrence: DE)
  Receive Date: 20180724
  Receipt Date: 20191024
  Transmission Date: 20200122
  Serious: Yes (Hospitalization, Other)
  Sender: FDA-Public Use
  Company Number: DE-UCBSA-2017009194

PATIENT
  Age: 69 Year
  Sex: Female

DRUGS (17)
  1. ROTIGOTINE [Suspect]
     Active Substance: ROTIGOTINE
     Indication: RESTLESS LEGS SYNDROME
     Dosage: 2 MG, UNK
     Route: 062
     Dates: start: 20170210
  2. ROTIGOTINE [Suspect]
     Active Substance: ROTIGOTINE
     Dosage: 6 MILLIGRAM, ONCE DAILY (QD)
     Route: 062
  3. AMLODIPINE [Concomitant]
     Active Substance: AMLODIPINE BESYLATE
     Indication: HYPERTENSION
  4. LEVODOPA [Concomitant]
     Active Substance: LEVODOPA
     Indication: RESTLESS LEGS SYNDROME
  5. ROTIGOTINE [Suspect]
     Active Substance: ROTIGOTINE
     Dosage: 4 MG, ONCE DAILY (QD)
     Route: 062
  6. LEVODOPA [Concomitant]
     Active Substance: LEVODOPA
     Indication: MUSCLE TWITCHING
  7. CANDESARTAN. [Concomitant]
     Active Substance: CANDESARTAN
     Indication: HYPERTENSION
  8. ROTIGOTINE [Suspect]
     Active Substance: ROTIGOTINE
     Dosage: 1 MG, ONCE DAILY (QD)
     Route: 062
  9. RESTEX [Concomitant]
     Active Substance: BENSERAZIDE\LEVODOPA
     Indication: RESTLESS LEGS SYNDROME
  10. TAPENTADOL [Concomitant]
     Active Substance: TAPENTADOL
     Indication: PRODUCT USED FOR UNKNOWN INDICATION
  11. TORASEMID [Concomitant]
     Active Substance: TORSEMIDE
     Indication: DEHYDRATION
  12. SIMVASTATIN. [Concomitant]
     Active Substance: SIMVASTATIN
     Indication: BLOOD CHOLESTEROL
  13. ASPIRIN. [Concomitant]
     Active Substance: ASPIRIN
     Indication: THYROID DISORDER
  14. LIMPTAR [Concomitant]
     Active Substance: AMINOPHYLLINE\QUININE SULFATE
     Indication: SEIZURE
  15. L THYROXINE [Concomitant]
     Active Substance: LEVOTHYROXINE SODIUM
     Indication: THYROID DISORDER
  16. METOPROLOL. [Concomitant]
     Active Substance: METOPROLOL
     Indication: HYPERTENSION
  17. TRAMADOL. [Concomitant]
     Active Substance: TRAMADOL
     Indication: PAIN

REACTIONS (12)
  - Arrhythmia [Recovered/Resolved]
  - Hypotonia [Recovered/Resolved]
  - Restless legs syndrome [Not Recovered/Not Resolved]
  - Drug ineffective [Unknown]
  - Thrombosis [Recovered/Resolved]
  - Atrial fibrillation [Recovering/Resolving]
  - Blood pressure fluctuation [Not Recovered/Not Resolved]
  - Myocardial rupture [Recovering/Resolving]
  - Overdose [Unknown]
  - Off label use [Unknown]
  - Application site pruritus [Recovered/Resolved]
  - Performance status decreased [Not Recovered/Not Resolved]

NARRATIVE: CASE EVENT DATE: 20170301
